FAERS Safety Report 16967771 (Version 1)
Quarter: 2019Q4

REPORT INFORMATION
  Report Type: Spontaneous
  Country: UM (occurrence: UM)
  Receive Date: 20190911
  Receipt Date: 20190911
  Transmission Date: 20200122
  Serious: Yes (Other)
  Sender: FDA-Public Use
  Company Number: None

PATIENT
  Age: 38 Year
  Sex: Female
  Weight: 145.15 kg

DRUGS (2)
  1. NEUTROGENA HEALTHY SKIN FIRMING SUNSCREEN BROAD SPECTRUM SPF15 [Suspect]
     Active Substance: AVOBENZONE\HOMOSALATE\OCTISALATE\OCTOCRYLENE\OXYBENZONE
     Indication: DRY SKIN
     Dosage: ?          OTHER DOSE:4-5 PUMPS ONCE;?
     Route: 061
     Dates: start: 20190824
  2. NEUTROGENA DEEP MOISTURE NIGHT CREAM [COSMETICS] [Suspect]
     Active Substance: COSMETICS
     Indication: DRY SKIN
     Route: 061

REACTIONS (6)
  - Dry skin [None]
  - Drug hypersensitivity [None]
  - Ocular hyperaemia [None]
  - Pruritus [None]
  - Chemical burn of skin [None]
  - Periorbital swelling [None]

NARRATIVE: CASE EVENT DATE: 20190824
